FAERS Safety Report 15114378 (Version 1)
Quarter: 2018Q3

REPORT INFORMATION
  Report Type: Report from Study
  Country: DE (occurrence: DE)
  Receive Date: 20180706
  Receipt Date: 20180706
  Transmission Date: 20181010
  Serious: No
  Sender: FDA-Public Use
  Company Number: DE-ROCHE-2107689

PATIENT
  Age: 46 Year
  Sex: Female

DRUGS (1)
  1. OCREVUS [Suspect]
     Active Substance: OCRELIZUMAB
     Indication: RELAPSING-REMITTING MULTIPLE SCLEROSIS
     Dosage: SECOND INFUSION 04/APR/2018
     Route: 042
     Dates: start: 20180321

REACTIONS (6)
  - Fatigue [Recovered/Resolved]
  - Dizziness [Recovered/Resolved]
  - Dysphonia [Recovering/Resolving]
  - Herpes zoster [Recovered/Resolved]
  - Increased upper airway secretion [Recovering/Resolving]
  - Cough [Recovering/Resolving]

NARRATIVE: CASE EVENT DATE: 20180321
